FAERS Safety Report 6199131-8 (Version None)
Quarter: 2009Q2

REPORT INFORMATION
  Report Type: 
  Country: None (occurrence: None)
  Receive Date: 20090522
  Receipt Date: 20090518
  Transmission Date: 20091009
  Serious: Yes (Death, Hospitalization, Other)
  Sender: FDA-Public Use
  Company Number: CH-ROCHE-551906

PATIENT
  Age: 80 Year
  Sex: Female

DRUGS (2)
  1. XELODA [Suspect]
     Dosage: FOR 14 DAYS, FOLLOWED BY 1 WEEK DRUG-FREE INTERVAL
     Route: 048
  2. BRIVUDINE [Interacting]
     Indication: HERPES ZOSTER
     Route: 065

REACTIONS (9)
  - COMA [None]
  - DRUG INTERACTION [None]
  - HERPES ZOSTER [None]
  - LEUKOPENIA [None]
  - RENAL IMPAIRMENT [None]
  - SEPTIC SHOCK [None]
  - SHOCK [None]
  - STEVENS-JOHNSON SYNDROME [None]
  - THROMBOCYTOPENIA [None]
